FAERS Safety Report 24200881 (Version 14)
Quarter: 2024Q4

REPORT INFORMATION
  Report Type: Report from Study
  Country: RU (occurrence: RU)
  Receive Date: 20240812
  Receipt Date: 20241230
  Transmission Date: 20250114
  Serious: Yes (Other)
  Sender: NOVARTIS
  Company Number: RU-002147023-NVSC2024RU160160

PATIENT
  Age: 0 Year
  Sex: Female
  Weight: 4.7 kg

DRUGS (3)
  1. ZOLGENSMA [Suspect]
     Active Substance: ONASEMNOGENE ABEPARVOVEC-XIOI
     Indication: Spinal muscular atrophy
     Dosage: 27.5, ONCE/SINGLE
     Route: 041
     Dates: start: 20240724, end: 20240724
  2. PREDNISOLONE [Concomitant]
     Active Substance: PREDNISOLONE
     Indication: Product used for unknown indication
     Dosage: 1 DOSAGE FORM, QD
     Route: 065
     Dates: start: 20240723
  3. URSODIOL [Concomitant]
     Active Substance: URSODIOL
     Indication: Product used for unknown indication
     Dosage: UNK UNK, QD (0.7 AT BEDTIME)
     Route: 065
     Dates: start: 20240720, end: 20240801

REACTIONS (21)
  - Blood potassium increased [Recovering/Resolving]
  - Neutrophil percentage decreased [Recovering/Resolving]
  - Aspartate aminotransferase increased [Recovering/Resolving]
  - Blood magnesium increased [Recovering/Resolving]
  - Blood bilirubin increased [Recovered/Resolved]
  - Bilirubin conjugated increased [Recovered/Resolved]
  - Blood lactate dehydrogenase increased [Recovering/Resolving]
  - Blood creatinine decreased [Recovering/Resolving]
  - Blood uric acid decreased [Recovering/Resolving]
  - Haemoglobin decreased [Recovering/Resolving]
  - White blood cell count decreased [Recovered/Resolved]
  - Basophil count decreased [Recovering/Resolving]
  - Basophil percentage increased [Recovered/Resolved]
  - Lymphocyte count decreased [Recovered/Resolved]
  - Monocyte count increased [Recovering/Resolving]
  - Monocyte percentage increased [Recovering/Resolving]
  - Blood creatinine increased [Not Recovered/Not Resolved]
  - Troponin I increased [Unknown]
  - Activated partial thromboplastin time prolonged [Unknown]
  - Blood test abnormal [Recovering/Resolving]
  - Prothrombin time prolonged [Unknown]

NARRATIVE: CASE EVENT DATE: 20240725
